FAERS Safety Report 10098227 (Version 2)
Quarter: 2014Q2

REPORT INFORMATION
  Report Type: Spontaneous
  Country: US (occurrence: US)
  Receive Date: 20140423
  Receipt Date: 20140423
  Transmission Date: 20141212
  Serious: No
  Sender: FDA-Public Use
  Company Number: US-BRISTOL-MYERS SQUIBB COMPANY-20242590

PATIENT
  Age: 63 Year
  Sex: Female
  Weight: 61.9 kg

DRUGS (7)
  1. YERVOY [Suspect]
     Indication: METASTATIC MALIGNANT MELANOMA
     Dosage: ON 17-FEB-2014-SECOND DOSE OF IPILIMUMAB
     Route: 042
     Dates: start: 20140127
  2. OMEPRAZOLE [Concomitant]
  3. INOSITOL [Concomitant]
  4. ALPRAZOLAM [Concomitant]
  5. SENNA-S [Concomitant]
  6. MAGNESIUM OXIDE [Concomitant]
  7. VITAMIN D3 [Concomitant]

REACTIONS (1)
  - Pyrexia [Recovered/Resolved]
